FAERS Safety Report 15325023 (Version 1)
Quarter: 2018Q3

REPORT INFORMATION
  Report Type: Spontaneous
  Country: US (occurrence: US)
  Receive Date: 20180828
  Receipt Date: 20180828
  Transmission Date: 20181010
  Serious: Yes (Other)
  Sender: FDA-Public Use
  Company Number: US-ROCHE-2170656

PATIENT
  Age: 67 Year
  Sex: Female
  Weight: 60.2 kg

DRUGS (16)
  1. PANTOPRAZOLE [Concomitant]
     Active Substance: PANTOPRAZOLE
     Route: 048
  2. GEMCITABINE [Concomitant]
     Active Substance: GEMCITABINE\GEMCITABINE HYDROCHLORIDE
     Route: 065
     Dates: start: 201803, end: 201806
  3. LEVOTHYROXINE. [Concomitant]
     Active Substance: LEVOTHYROXINE
     Dosage: ONGOING: YES
     Route: 048
  4. TRAMADOL. [Concomitant]
     Active Substance: TRAMADOL
     Indication: ABDOMINAL PAIN
     Dosage: AS NEEDED ;ONGOING: YES
     Route: 048
  5. XELODA [Suspect]
     Active Substance: CAPECITABINE
     Indication: PRODUCT USED FOR UNKNOWN INDICATION
     Dosage: ONGOING: NO
     Route: 065
     Dates: start: 20160615, end: 20160720
  6. CREON [Concomitant]
     Active Substance: PANCRELIPASE AMYLASE\PANCRELIPASE LIPASE\PANCRELIPASE PROTEASE
     Dosage: 12000?38000 UNIT 2?3 CAPSULES WITH MEALS
     Route: 065
     Dates: start: 20171009
  7. FOLINIC ACID [Concomitant]
     Active Substance: LEUCOVORIN
     Dosage: 3 MONTHS
     Route: 065
     Dates: start: 20171018, end: 201712
  8. FLUOROURACIL. [Concomitant]
     Active Substance: FLUOROURACIL
     Dosage: 3 MONTHS
     Route: 065
     Dates: start: 20171018, end: 201712
  9. OXALIPLATIN. [Concomitant]
     Active Substance: OXALIPLATIN
     Dosage: 3 MONTHS
     Route: 065
     Dates: start: 20171018, end: 201712
  10. CREON [Concomitant]
     Active Substance: PANCRELIPASE AMYLASE\PANCRELIPASE LIPASE\PANCRELIPASE PROTEASE
     Dosage: 60000 UNIT 1?2 CAPSULES WITH SNACKS
     Route: 065
     Dates: start: 20171009
  11. FOLINIC ACID [Concomitant]
     Active Substance: LEUCOVORIN
     Dosage: 3 MONTHS
     Route: 065
     Dates: start: 20160203, end: 20160413
  12. FLUOROURACIL. [Concomitant]
     Active Substance: FLUOROURACIL
     Dosage: 3 MONTHS
     Route: 065
     Dates: start: 20160203, end: 20160413
  13. VALSARTAN. [Concomitant]
     Active Substance: VALSARTAN
     Route: 048
  14. OXALIPLATIN. [Concomitant]
     Active Substance: OXALIPLATIN
     Dosage: 3 MONTHS
     Route: 065
     Dates: start: 20160203, end: 20160413
  15. ABRAXANE [Concomitant]
     Active Substance: PACLITAXEL
     Route: 065
     Dates: start: 201803, end: 201806
  16. PROTONIX [Concomitant]
     Active Substance: PANTOPRAZOLE SODIUM
     Dosage: ONGOING: YES
     Route: 048

REACTIONS (22)
  - Pulmonary embolism [Unknown]
  - Metastases to peritoneum [Unknown]
  - Spinal osteoarthritis [Unknown]
  - Nausea [Unknown]
  - Ascites [Unknown]
  - Abdominal pain upper [Unknown]
  - Computerised tomogram thorax abnormal [Unknown]
  - Lymphadenopathy [Unknown]
  - Malignant neoplasm of ampulla of Vater [Unknown]
  - Pulmonary infarction [Unknown]
  - Diverticulum intestinal [Unknown]
  - Hypoaesthesia [Unknown]
  - Pancreatic atrophy [Unknown]
  - Pancreatic carcinoma [Unknown]
  - Small intestine adenocarcinoma [Unknown]
  - Pulmonary arteriopathy [Unknown]
  - Fatigue [Unknown]
  - Ill-defined disorder [Unknown]
  - Acquired gene mutation [Unknown]
  - Thyroid atrophy [Unknown]
  - Peritoneal fluid analysis abnormal [Unknown]
  - Rash [Unknown]

NARRATIVE: CASE EVENT DATE: 20160628
